FAERS Safety Report 24311666 (Version 2)
Quarter: 2024Q3

REPORT INFORMATION
  Report Type: Spontaneous
  Country: IN (occurrence: IN)
  Receive Date: 20240912
  Receipt Date: 20240926
  Transmission Date: 20241017
  Serious: Yes (Hospitalization, Other)
  Sender: PFIZER
  Company Number: IN-PFIZER INC-PV202400017415

PATIENT
  Age: 58 Year
  Sex: Female
  Weight: 84 kg

DRUGS (1)
  1. CRIZOTINIB [Suspect]
     Active Substance: CRIZOTINIB
     Indication: Lung neoplasm malignant
     Dosage: 250 MG, 2X/DAY (1-1; X 3 MONTHS)
     Route: 048
     Dates: start: 20210929

REACTIONS (14)
  - Pulmonary fibrosis [Recovering/Resolving]
  - Central nervous system lesion [Recovering/Resolving]
  - Brain scan abnormal [Recovering/Resolving]
  - Gliosis [Recovering/Resolving]
  - Lung disorder [Recovering/Resolving]
  - Chest scan abnormal [Recovering/Resolving]
  - Ectopic thyroid [Unknown]
  - Parathyroid disorder [Unknown]
  - Scan abdomen abnormal [Recovering/Resolving]
  - Uterine enlargement [Recovering/Resolving]
  - Uterine leiomyoma [Recovering/Resolving]
  - Bone scan abnormal [Unknown]
  - Bone lesion [Recovering/Resolving]
  - Product prescribing error [Unknown]

NARRATIVE: CASE EVENT DATE: 20240830
